FAERS Safety Report 5338305-2 (Version None)
Quarter: 2007Q2

REPORT INFORMATION
  Report Type: 
  Country: None (occurrence: None)
  Receive Date: 20070405
  Receipt Date: 20061120
  Transmission Date: 20071010
  Serious: No
  Sender: FDA-Public Use
  Company Number: US200611003862

PATIENT
  Sex: Female

DRUGS (2)
  1. CYMBALTA [Suspect]
     Indication: DEPRESSION
     Dosage: 30 MG
     Dates: start: 20060101, end: 20061109
  2. FOCALIN/USA/(DEXMETHYLPHENIDATE HYDROCHLORIDE) UNKNOWN [Concomitant]

REACTIONS (8)
  - AGITATION [None]
  - BURNING SENSATION [None]
  - CONFUSIONAL STATE [None]
  - DIZZINESS [None]
  - INFLUENZA LIKE ILLNESS [None]
  - INSOMNIA [None]
  - NASOPHARYNGITIS [None]
  - PARAESTHESIA [None]
